FAERS Safety Report 7797756-7 (Version None)
Quarter: 2011Q4

REPORT INFORMATION
  Report Type: 
  Country: None (occurrence: None)
  Receive Date: 20111005
  Receipt Date: 20110928
  Transmission Date: 20120403
  Serious: Yes (Life-Threatening, Other)
  Sender: FDA-Public Use
  Company Number: PHHY2011JP86418

PATIENT
  Sex: Female

DRUGS (6)
  1. AFINITOR [Suspect]
     Indication: METASTATIC RENAL CELL CARCINOMA
     Dosage: 10 MG, UNK
     Route: 048
     Dates: start: 20101224, end: 20110203
  2. INTERFERON ALFA [Concomitant]
     Indication: METASTATIC RENAL CELL CARCINOMA
     Dosage: 5000000 IU, UNK
     Dates: start: 20100901, end: 20101210
  3. SORAFENIB TOSILATE [Concomitant]
     Indication: METASTATIC RENAL CELL CARCINOMA
     Dosage: 400 MG, UNK
     Route: 048
     Dates: start: 20100915, end: 20101223
  4. DIOVAN [Suspect]
     Indication: HYPERTENSION
     Dosage: 80 MG, UNK
     Route: 048
     Dates: start: 20101005, end: 20110611
  5. AZUNOL GARGLE LIQUID [Concomitant]
     Indication: PROPHYLAXIS
     Dosage: UNK UKN, UNK
     Route: 048
     Dates: start: 20110107, end: 20110203
  6. AFINITOR [Suspect]
     Dosage: 5 MG, UNK
     Route: 048
     Dates: start: 20110204, end: 20110611

REACTIONS (3)
  - HEPATITIS B [None]
  - NEOPLASM PROGRESSION [None]
  - NEOPLASM MALIGNANT [None]
